FAERS Safety Report 10975018 (Version 1)
Quarter: 2015Q1

REPORT INFORMATION
  Report Type: Spontaneous
  Country: None (occurrence: None)
  Receive Date: 20150226
  Receipt Date: 20150226
  Transmission Date: 20150721
  Serious: No
  Sender: FDA-Public Use
  Company Number: TPA2009A04214

PATIENT
  Age: 73 Year
  Sex: Male
  Weight: 84.37 kg

DRUGS (6)
  1. BABY ASPIRIN (ACETYLSALICYLIC ACID) [Concomitant]
     Active Substance: ASPIRIN
  2. HYDROCODONE (HYDROCODONE) [Concomitant]
     Active Substance: HYDROCODONE
  3. ULORIC [Suspect]
     Active Substance: FEBUXOSTAT
     Indication: GOUT
     Route: 048
     Dates: start: 200910, end: 20091209
  4. LISINOPRIL (LISINOPRIL) [Concomitant]
     Active Substance: LISINOPRIL
  5. NAPROXEN (NAPROXEN) [Concomitant]
     Active Substance: NAPROXEN
  6. SIMVASTATIN (SIMVASTATIN) [Concomitant]
     Active Substance: SIMVASTATIN

REACTIONS (2)
  - Condition aggravated [None]
  - Gout [None]

NARRATIVE: CASE EVENT DATE: 200912
